FAERS Safety Report 18311985 (Version 1)
Quarter: 2020Q3

REPORT INFORMATION
  Report Type: Spontaneous
  Country: US (occurrence: US)
  Receive Date: 20200925
  Receipt Date: 20200925
  Transmission Date: 20201103
  Serious: Yes (Life-Threatening)
  Sender: FDA-Public Use
  Company Number: None

PATIENT
  Age: 41 Year
  Sex: Female
  Weight: 61.24 kg

DRUGS (1)
  1. PARAGARD T 380A [Suspect]
     Active Substance: COPPER
     Dates: start: 20180802, end: 20200715

REACTIONS (11)
  - Decreased interest [None]
  - Acne [None]
  - Alopecia [None]
  - Fatigue [None]
  - Tooth disorder [None]
  - Amnesia [None]
  - Gingival disorder [None]
  - Sexual dysfunction [None]
  - Decreased appetite [None]
  - Disturbance in attention [None]
  - Dizziness [None]
